FAERS Safety Report 5067906-4 (Version None)
Quarter: 2006Q3

REPORT INFORMATION
  Report Type: 
  Country: None (occurrence: None)
  Receive Date: 20060802
  Receipt Date: 20060710
  Transmission Date: 20061208
  Serious: Yes (Hospitalization)
  Sender: FDA-Public Use
  Company Number: 2006UW14192

PATIENT
  Age: 59 Year
  Sex: Male
  Weight: 71.2 kg

DRUGS (4)
  1. TOPROL-XL [Suspect]
     Indication: HYPERTENSION
     Route: 048
     Dates: start: 20060301
  2. TOPROL-XL [Suspect]
     Route: 048
     Dates: end: 20060301
  3. WELLBUTRIN [Concomitant]
  4. LISINOPRIL AND HYDROCHLOROTHIAZIDE [Concomitant]

REACTIONS (7)
  - CATATONIA [None]
  - DEPRESSION [None]
  - DYSPNOEA [None]
  - FATIGUE [None]
  - MUSCULAR WEAKNESS [None]
  - NEUROPATHY [None]
  - PAIN IN EXTREMITY [None]
